FAERS Safety Report 8871802 (Version 1)
Quarter: 2012Q4

REPORT INFORMATION
  Report Type: 
  Country: US (occurrence: US)
  Receive Date: 20121026
  Receipt Date: 20121026
  Transmission Date: 20130627
  Serious: No
  Sender: FDA-Public Use
  Company Number: US-AMGEN-USASP2012048366

PATIENT
  Age: 59 Year
  Sex: Female
  Weight: 62.59 kg

DRUGS (11)
  1. ENBREL [Suspect]
     Indication: PRODUCT USED FOR UNKNOWN INDICATION
     Dosage: 50 mg, qwk
     Route: 058
  2. PROTONIX [Concomitant]
     Dosage: 20 mg, UNK
  3. RESTASIS [Concomitant]
     Dosage: 0.05 %, UNK
  4. PREMPRO [Concomitant]
     Dosage: 0.625 UNK, UNK
  5. METHOTREXATE [Concomitant]
     Dosage: 2.5 mg, UNK
  6. TRAMADOL HCL [Concomitant]
     Dosage: 50 mg, UNK
  7. KETOCONAZOLE [Concomitant]
     Dosage: 200 mg, UNK
  8. VITAMIN D /00107901/ [Concomitant]
     Dosage: 1000 unit, UNK
  9. CITRACAL + D                       /01438101/ [Concomitant]
     Dosage: UNK
  10. LOTEMAX [Concomitant]
     Dosage: 0.5 %, UNK
  11. ASPIRIN [Concomitant]
     Dosage: 81 mg, UNK

REACTIONS (4)
  - Fatigue [Unknown]
  - Dysphonia [Recovered/Resolved]
  - Nasopharyngitis [Recovered/Resolved]
  - Onychomycosis [Unknown]
